FAERS Safety Report 8339626-1 (Version None)
Quarter: 2012Q2

REPORT INFORMATION
  Report Type: 
  Country: None (occurrence: None)
  Receive Date: 20120507
  Receipt Date: 20120426
  Transmission Date: 20120825
  Serious: Yes (Hospitalization)
  Sender: FDA-Public Use
  Company Number: IT-SANOFI-AVENTIS-200915526EU

PATIENT
  Age: 62 Year
  Sex: Male

DRUGS (5)
  1. LASIX [Suspect]
     Dates: start: 20090827, end: 20090902
  2. PHENYTOIN SODIUM [Suspect]
     Indication: CONVULSION PROPHYLAXIS
     Route: 048
     Dates: start: 20090814, end: 20090905
  3. ENOXAPARIN SODIUM [Suspect]
     Indication: PULMONARY INFARCTION
     Route: 058
     Dates: start: 20090813, end: 20090909
  4. LASIX [Suspect]
     Dates: start: 20090901
  5. ENOXAPARIN SODIUM [Suspect]
     Indication: PULMONARY EMBOLISM
     Route: 058
     Dates: start: 20090813, end: 20090909

REACTIONS (2)
  - EOSINOPHILIA [None]
  - DRUG RASH WITH EOSINOPHILIA AND SYSTEMIC SYMPTOMS [None]
